FAERS Safety Report 12401966 (Version 2)
Quarter: 2016Q2

REPORT INFORMATION
  Report Type: Spontaneous
  Country: US (occurrence: US)
  Receive Date: 20160525
  Receipt Date: 20160527
  Transmission Date: 20160815
  Serious: No
  Sender: FDA-Public Use
  Company Number: US-SA-2015SA210964

PATIENT
  Age: 71 Year
  Sex: Female

DRUGS (2)
  1. SOLOSTAR [Concomitant]
     Active Substance: DEVICE
     Indication: DEVICE THERAPY
     Dates: start: 2007
  2. LANTUS SOLOSTAR [Suspect]
     Active Substance: INSULIN GLARGINE
     Indication: TYPE 2 DIABETES MELLITUS
     Dosage: 20-32 U
     Route: 065
     Dates: start: 2007

REACTIONS (7)
  - Injection site reaction [Unknown]
  - Back pain [Unknown]
  - Gait disturbance [Unknown]
  - Muscle spasms [Unknown]
  - Mobility decreased [Unknown]
  - Injection site pain [Unknown]
  - Infection [Unknown]
